FAERS Safety Report 7059365-7 (Version None)
Quarter: 2010Q4

REPORT INFORMATION
  Report Type: 
  Country: None (occurrence: None)
  Receive Date: 20101025
  Receipt Date: 20101014
  Transmission Date: 20110411
  Serious: No
  Sender: FDA-Public Use
  Company Number: 2010BI004533

PATIENT
  Sex: Male

DRUGS (2)
  1. TYSABRI [Suspect]
     Indication: MULTIPLE SCLEROSIS
     Route: 042
     Dates: start: 20090408, end: 20100714
  2. TYSABRI [Suspect]
     Route: 042
     Dates: start: 20100930

REACTIONS (4)
  - ABDOMINAL HERNIA [None]
  - HERNIA REPAIR [None]
  - IMPAIRED HEALING [None]
  - MEMORY IMPAIRMENT [None]
